FAERS Safety Report 16680451 (Version 4)
Quarter: 2019Q4

REPORT INFORMATION
  Report Type: Spontaneous
  Country: US (occurrence: US)
  Receive Date: 20190807
  Receipt Date: 20191202
  Transmission Date: 20200122
  Serious: Yes (Congenital Anomaly, Other)
  Sender: FDA-Public Use
  Company Number: PHEH2019US032792

PATIENT
  Sex: Female

DRUGS (2)
  1. ZOFRAN ODT [Suspect]
     Active Substance: ONDANSETRON HYDROCHLORIDE
     Indication: FOETAL EXPOSURE DURING PREGNANCY
     Dosage: MOTHER DOSE: 02 MG, BID
     Route: 064
  2. ZOFRAN [Suspect]
     Active Substance: ONDANSETRON HYDROCHLORIDE
     Indication: FOETAL EXPOSURE DURING PREGNANCY
     Route: 064

REACTIONS (59)
  - Ventricular septal defect [Unknown]
  - Atrial septal defect [Unknown]
  - Foetal exposure during pregnancy [Unknown]
  - Otitis media [Unknown]
  - Wheezing [Unknown]
  - Rash [Unknown]
  - Bronchial hyperreactivity [Unknown]
  - Right ventricle outflow tract obstruction [Unknown]
  - Premature baby [Unknown]
  - Anal fistula [Unknown]
  - Oropharyngeal pain [Unknown]
  - Pharyngitis [Unknown]
  - Acute sinusitis [Unknown]
  - Flank pain [Unknown]
  - Cystitis [Unknown]
  - Cardiac failure congestive [Unknown]
  - Syncope [Unknown]
  - Urinary tract infection [Unknown]
  - Animal bite [Unknown]
  - Cardiomegaly [Unknown]
  - Pyrexia [Unknown]
  - Nausea [Unknown]
  - Pulmonary valve stenosis [Unknown]
  - Cough [Unknown]
  - Discomfort [Unknown]
  - Asthenia [Unknown]
  - Diarrhoea [Unknown]
  - Endometriosis [Unknown]
  - Small for dates baby [Unknown]
  - Pneumonia [Unknown]
  - Costochondritis [Unknown]
  - Left-to-right cardiac shunt [Unknown]
  - Tricuspid valve incompetence [Unknown]
  - Chest pain [Unknown]
  - Decreased appetite [Unknown]
  - Rhinorrhoea [Unknown]
  - Nasal congestion [Unknown]
  - Abdominal pain [Unknown]
  - Tachycardia [Unknown]
  - Pelvic pain [Unknown]
  - Breast pain [Unknown]
  - Anal atresia [Unknown]
  - Aortic valve incompetence [Unknown]
  - Left atrial enlargement [Unknown]
  - Cardiac murmur [Unknown]
  - Toe walking [Unknown]
  - Headache [Unknown]
  - Lymphadenopathy [Unknown]
  - Back pain [Unknown]
  - Pyelonephritis [Unknown]
  - Injury [Unknown]
  - Asthma [Unknown]
  - Abdominal pain upper [Unknown]
  - Upper respiratory tract infection [Unknown]
  - Migraine [Unknown]
  - Irritable bowel syndrome [Unknown]
  - Dysmenorrhoea [Unknown]
  - Dyspareunia [Unknown]
  - Uterine spasm [Unknown]
